FAERS Safety Report 8260013-9 (Version None)
Quarter: 2012Q2

REPORT INFORMATION
  Report Type: 
  Country: None (occurrence: None)
  Receive Date: 20120404
  Receipt Date: 20120328
  Transmission Date: 20120825
  Serious: Yes (Death)
  Sender: FDA-Public Use
  Company Number: JP-PFIZER INC-2012067503

PATIENT
  Age: 83 Year
  Sex: Female

DRUGS (5)
  1. OLMESARTAN MEDOXOMIL [Concomitant]
     Indication: HYPERTENSION
     Dosage: 10 MG, 1X/DAY
     Route: 048
  2. ARICEPT [Suspect]
     Dosage: 5 MG, 1X/DAY
     Route: 048
     Dates: start: 20120301, end: 20120305
  3. ARICEPT [Suspect]
     Dosage: 3 MG, 1X/DAY
     Route: 048
     Dates: start: 20120306
  4. ARICEPT [Suspect]
     Indication: DEMENTIA ALZHEIMER'S TYPE
     Dosage: 3 MG, 1X/DAY
     Route: 048
     Dates: start: 20120216, end: 20120229
  5. AMLODIPINE BESYLATE [Suspect]
     Indication: HYPERTENSION
     Dosage: 5 MG, 1X/DAY
     Route: 048

REACTIONS (3)
  - DECREASED APPETITE [None]
  - PULMONARY OEDEMA [None]
  - NAUSEA [None]
